FAERS Safety Report 15651317 (Version 1)
Quarter: 2018Q4

REPORT INFORMATION
  Report Type: Report from Study
  Country: CA (occurrence: CA)
  Receive Date: 20181123
  Receipt Date: 20181123
  Transmission Date: 20190205
  Serious: Yes (Other)
  Sender: FDA-Public Use
  Company Number: CA-GLAXOSMITHKLINE-CA2018GSK209993

PATIENT
  Sex: Male

DRUGS (1)
  1. MEPOLIZUMAB [Suspect]
     Active Substance: MEPOLIZUMAB
     Indication: ASTHMA
     Dosage: 100 MG, Z (MONTHLY)
     Route: 042

REACTIONS (7)
  - General physical health deterioration [Unknown]
  - Panic attack [Unknown]
  - Nephrolithiasis [Unknown]
  - Traumatic lung injury [Unknown]
  - Pulmonary fibrosis [Unknown]
  - Depression [Unknown]
  - Malaise [Unknown]
